FAERS Safety Report 7553978-1 (Version None)
Quarter: 2011Q2

REPORT INFORMATION
  Report Type: 
  Country: None (occurrence: None)
  Receive Date: 20110617
  Receipt Date: 20110601
  Transmission Date: 20111010
  Serious: No
  Sender: FDA-Public Use
  Company Number: US-B.I. PHARMACEUTICALS,INC./RIDGEFIELD-2011-BP-14452BP

PATIENT
  Age: 78 Year
  Sex: Female

DRUGS (8)
  1. LANOXIN [Concomitant]
     Dosage: 125 MCG
     Route: 048
  2. OMEPRAZOLE [Concomitant]
     Dosage: 40 MG
     Route: 048
  3. TOPROL-XL [Concomitant]
     Dosage: 100 MG
     Route: 048
  4. CELEXA [Concomitant]
     Dosage: 10 MG
     Route: 048
  5. PACERONE [Concomitant]
     Dosage: 20 MG
     Route: 048
  6. HYDROCODONE [Concomitant]
     Indication: BACK PAIN
     Dosage: 5 MG
     Route: 048
  7. DILTIAZEM CD [Concomitant]
     Indication: CARDIAC DISORDER
     Dosage: 120 MG
     Route: 048
  8. PRADAXA [Suspect]
     Indication: ATRIAL FIBRILLATION
     Dosage: 300 MG
     Route: 048
     Dates: start: 20110401

REACTIONS (2)
  - OCULAR HYPERAEMIA [None]
  - PERIORBITAL HAEMATOMA [None]
